FAERS Safety Report 5392267-0 (Version None)
Quarter: 2007Q3

REPORT INFORMATION
  Report Type: 
  Country: None (occurrence: None)
  Receive Date: 20070720
  Receipt Date: 20070717
  Transmission Date: 20080115
  Serious: Yes (Other)
  Sender: FDA-Public Use
  Company Number: US-JNJFOC-20070601890

PATIENT
  Sex: Female
  Weight: 81.65 kg

DRUGS (2)
  1. LEVAQUIN [Suspect]
     Indication: URINARY TRACT INFECTION
     Route: 048
  2. LEXAPRO [Concomitant]
     Route: 048

REACTIONS (5)
  - ANXIETY [None]
  - PARAESTHESIA [None]
  - RASH [None]
  - URTICARIA [None]
  - VISUAL DISTURBANCE [None]
